FAERS Safety Report 17288293 (Version 1)
Quarter: 2020Q1

REPORT INFORMATION
  Report Type: Spontaneous
  Country: BR (occurrence: BR)
  Receive Date: 20200120
  Receipt Date: 20200120
  Transmission Date: 20200409
  Serious: Yes (Hospitalization, Other)
  Sender: FDA-Public Use
  Company Number: BR-EMD SERONO-9140550

PATIENT
  Age: 62 Year
  Sex: Female

DRUGS (2)
  1. GLIFAGE [Suspect]
     Active Substance: METFORMIN HYDROCHLORIDE
     Dosage: DOSE REINTRODUCED: GLIFAGE XR 500 MG 1 TABLET IN THE MORNING AND 850 OR 1000 MG 2 TABLETS AT NIGHT
     Dates: start: 201910
  2. GLIFAGE [Suspect]
     Active Substance: METFORMIN HYDROCHLORIDE
     Indication: TYPE 2 DIABETES MELLITUS
     Dates: start: 2015, end: 2019

REACTIONS (3)
  - Guillain-Barre syndrome [Recovering/Resolving]
  - Blood glucose increased [Not Recovered/Not Resolved]
  - Chikungunya virus infection [Unknown]

NARRATIVE: CASE EVENT DATE: 201609
